FAERS Safety Report 6598076-9 (Version None)
Quarter: 2010Q1

REPORT INFORMATION
  Report Type: 
  Country: None (occurrence: None)
  Receive Date: 20100216
  Receipt Date: 20100202
  Transmission Date: 20100710
  Serious: Yes (Death, Other)
  Sender: FDA-Public Use
  Company Number: MC200800401

PATIENT

DRUGS (3)
  1. ANGIOMAX [Suspect]
     Indication: PERCUTANEOUS CORONARY INTERVENTION
     Dosage: 0.75 MG/KG, BOLUS; INTRAVENOUS
     Route: 042
  2. CLOPIDOGREL [Concomitant]
  3. ASPIRIN [Concomitant]

REACTIONS (8)
  - BLOOD PRODUCT TRANSFUSION [None]
  - EYE HAEMORRHAGE [None]
  - HAEMORRHAGE [None]
  - HAEMORRHAGE INTRACRANIAL [None]
  - MYOCARDIAL INFARCTION [None]
  - MYOCARDIAL ISCHAEMIA [None]
  - RETROPERITONEAL HAEMORRHAGE [None]
  - THROMBOSIS IN DEVICE [None]
